FAERS Safety Report 7526341-7 (Version None)
Quarter: 2011Q2

REPORT INFORMATION
  Report Type: 
  Country: None (occurrence: None)
  Receive Date: 20110527
  Receipt Date: 20110512
  Transmission Date: 20111010
  Serious: Yes (Other)
  Sender: FDA-Public Use
  Company Number: 2009S1007599

PATIENT
  Age: 75 Year
  Sex: Male
  Weight: 78.9259 kg

DRUGS (6)
  1. SODIUM PHOSPHATE MONOBASIC MONOHYDRATE AND NAPO4 DIBASIC ANHYDROUS [Suspect]
     Indication: COLONOSCOPY
     Dosage: ;PO
     Route: 048
     Dates: start: 20070321
  2. ASPIRIN [Concomitant]
  3. CELEXA [Concomitant]
  4. LISINOPRIL [Suspect]
     Indication: HYPERTENSION
     Dosage: 20 MG;QD;PO
     Route: 048
  5. DILTIAZEM [Concomitant]
  6. TRAMADOL HCL [Concomitant]

REACTIONS (5)
  - RENAL FAILURE CHRONIC [None]
  - ABDOMINAL DISCOMFORT [None]
  - DRUG INTERACTION [None]
  - RENAL FAILURE ACUTE [None]
  - ABDOMINAL PAIN UPPER [None]
